FAERS Safety Report 18851855 (Version 1)
Quarter: 2021Q1

REPORT INFORMATION
  Report Type: Spontaneous
  Country: AU (occurrence: AU)
  Receive Date: 20210205
  Receipt Date: 20210205
  Transmission Date: 20210420
  Serious: Yes (Other)
  Sender: FDA-Public Use
  Company Number: AU-GLAXOSMITHKLINE-AUCH2021APC003183

PATIENT
  Sex: Male

DRUGS (3)
  1. CODEINE [Suspect]
     Active Substance: CODEINE
     Indication: PRODUCT USED FOR UNKNOWN INDICATION
     Dosage: UNK
  2. NUROFEN [Suspect]
     Active Substance: IBUPROFEN
     Indication: PRODUCT USED FOR UNKNOWN INDICATION
  3. IBUPROFEN. [Suspect]
     Active Substance: IBUPROFEN
     Indication: PRODUCT USED FOR UNKNOWN INDICATION
     Dosage: UNK

REACTIONS (10)
  - Hypersomnia [Unknown]
  - Aggression [Unknown]
  - Drug abuse [Unknown]
  - Muscle twitching [Unknown]
  - Intestinal ulcer perforation [Unknown]
  - Gastrointestinal disorder [Unknown]
  - Coma [Unknown]
  - Sepsis [Unknown]
  - Dyskinesia [Unknown]
  - Pain [Unknown]
